FAERS Safety Report 6873275-7 (Version None)
Quarter: 2010Q3

REPORT INFORMATION
  Report Type: 
  Country: None (occurrence: None)
  Receive Date: 20100723
  Receipt Date: 20090204
  Transmission Date: 20110219
  Serious: No
  Sender: FDA-Public Use
  Company Number: US-PFIZER INC-2008152694

PATIENT
  Sex: Male
  Weight: 88.889 kg

DRUGS (5)
  1. CHANTIX [Suspect]
     Indication: SMOKING CESSATION THERAPY
     Dosage: 1 MG, 2X/DAY
     Dates: start: 20060101
  2. GABAPENTIN [Concomitant]
     Dosage: 600 MG, 3X/DAY
  3. INDOMETHACIN [Concomitant]
     Indication: PAIN
     Dosage: UNK
  4. CYCLOBENZAPRINE [Concomitant]
     Indication: HYPOTONIA
     Dosage: UNK
  5. STRATTERA [Concomitant]
     Dosage: 80 MG, 1X/DAY

REACTIONS (2)
  - DRUG INEFFECTIVE [None]
  - DYSGEUSIA [None]
